FAERS Safety Report 9112728 (Version 1)
Quarter: 2013Q1

REPORT INFORMATION
  Report Type: Spontaneous
  Country: BR (occurrence: BR)
  Receive Date: 20130211
  Receipt Date: 20130211
  Transmission Date: 20140127
  Serious: Yes (Hospitalization, Other)
  Sender: FDA-Public Use
  Company Number: BR-ASTRAZENECA-2012SE18163

PATIENT
  Age: 63 Year
  Sex: Female
  Weight: 110 kg

DRUGS (6)
  1. NOVALDEX [Suspect]
     Indication: BREAST CANCER
     Route: 048
     Dates: start: 2009, end: 201202
  2. ARIMIDEX [Suspect]
     Indication: LUNG CANCER METASTATIC
     Dosage: DAILY
     Route: 048
     Dates: start: 201202
  3. ARIMIDEX [Suspect]
     Indication: BREAST CANCER
     Dosage: DAILY
     Route: 048
     Dates: start: 201202
  4. LOSARTAN [Concomitant]
     Indication: BLOOD PRESSURE ABNORMAL
     Route: 048
  5. UNKNOWN [Concomitant]
     Indication: DIABETES MELLITUS
     Route: 048
  6. TYLEX [Concomitant]
     Indication: LUNG DISORDER
     Route: 048

REACTIONS (3)
  - Pleural effusion [Recovered/Resolved]
  - Lung cancer metastatic [Not Recovered/Not Resolved]
  - Breast mass [Unknown]
